FAERS Safety Report 23414231 (Version 1)
Quarter: 2024Q1

REPORT INFORMATION
  Report Type: Report from Study
  Country: US (occurrence: US)
  Receive Date: 20240118
  Receipt Date: 20240118
  Transmission Date: 20240410
  Serious: Yes (Other)
  Sender: FDA-Public Use
  Company Number: US-ABBVIE-5590471

PATIENT
  Sex: Female

DRUGS (1)
  1. VENCLEXTA [Suspect]
     Active Substance: VENETOCLAX
     Indication: Chronic lymphocytic leukaemia recurrent
     Dosage: 4 TABLET(S) BY MOUTH 1 TIMES DAILY WITH A MEAL AND WATER?FORM STRENGTH: 100 MILLIGRAM
     Route: 048

REACTIONS (1)
  - Wrist fracture [Unknown]
